FAERS Safety Report 22077502 (Version 1)
Quarter: 2023Q1

REPORT INFORMATION
  Report Type: Spontaneous
  Country: ZA (occurrence: ZA)
  Receive Date: 20230309
  Receipt Date: 20230309
  Transmission Date: 20230417
  Serious: Yes (Other)
  Sender: FDA-Public Use
  Company Number: ZA-SA-SAC20230308000827

PATIENT
  Sex: Female

DRUGS (1)
  1. INSULIN GLARGINE [Suspect]
     Active Substance: INSULIN GLARGINE
     Dosage: 32 IU
     Route: 065

REACTIONS (2)
  - Hallucination [Unknown]
  - Blood glucose increased [Unknown]
